FAERS Safety Report 6898557-4 (Version None)
Quarter: 2010Q3

REPORT INFORMATION
  Report Type: 
  Country: None (occurrence: None)
  Receive Date: 20100802
  Receipt Date: 20071030
  Transmission Date: 20110219
  Serious: No
  Sender: FDA-Public Use
  Company Number: US-PFIZER INC-2007089255

PATIENT
  Sex: Male
  Weight: 113.6 kg

DRUGS (3)
  1. LYRICA [Suspect]
     Indication: PARAESTHESIA
     Dates: start: 20071018
  2. PREDNISONE [Concomitant]
     Indication: SARCOIDOSIS
  3. GLIPIZIDE [Concomitant]
     Indication: DIABETES MELLITUS

REACTIONS (3)
  - MUSCLE TIGHTNESS [None]
  - PAIN IN EXTREMITY [None]
  - PARAESTHESIA [None]
